FAERS Safety Report 6067861-4 (Version None)
Quarter: 2009Q1

REPORT INFORMATION
  Report Type: 
  Country: None (occurrence: None)
  Receive Date: 20090203
  Receipt Date: 20090116
  Transmission Date: 20090719
  Serious: Yes (Death)
  Sender: FDA-Public Use
  Company Number: 08-208

PATIENT
  Age: 70 Year
  Sex: Female

DRUGS (6)
  1. FAZACLO ODT [Suspect]
     Dosage: 500 MG DAILY; PO
     Route: 048
     Dates: start: 20060530, end: 20080724
  2. TOFRANIL [Concomitant]
  3. CELEXA [Concomitant]
  4. SEPTRA [Concomitant]
  5. ASPIRIN [Concomitant]
  6. MULTI-VITAMIN [Concomitant]

REACTIONS (1)
  - VOMITING [None]
